FAERS Safety Report 10668503 (Version 1)
Quarter: 2014Q4

REPORT INFORMATION
  Report Type: Spontaneous
  Country: US (occurrence: None)
  Receive Date: 20141217
  Receipt Date: 20141217
  Transmission Date: 20150529
  Serious: No
  Sender: FDA-Public Use
  Company Number: 2014CT000137

PATIENT
  Age: 71 Year
  Sex: Female

DRUGS (2)
  1. KORLYM [Suspect]
     Active Substance: MIFEPRISTONE
     Indication: ADRENAL ADENOMA
     Route: 048
     Dates: start: 20140530
  2. KORLYM [Suspect]
     Active Substance: MIFEPRISTONE
     Indication: CUSHING^S SYNDROME
     Route: 048
     Dates: start: 20140530

REACTIONS (4)
  - Local swelling [None]
  - Pain in extremity [None]
  - Gait disturbance [None]
  - Throat lesion [None]

NARRATIVE: CASE EVENT DATE: 2014
